FAERS Safety Report 6174586-3 (Version None)
Quarter: 2009Q2

REPORT INFORMATION
  Report Type: 
  Country: None (occurrence: None)
  Receive Date: 20090430
  Receipt Date: 20080806
  Transmission Date: 20091009
  Serious: No
  Sender: FDA-Public Use
  Company Number: US-ASTRAZENECA-2008UW16101

PATIENT
  Age: 76 Year
  Sex: Male
  Weight: 90.7 kg

DRUGS (7)
  1. NEXIUM [Suspect]
     Indication: GASTROOESOPHAGEAL REFLUX DISEASE
     Route: 048
     Dates: start: 20080803
  2. DIOVAN HCT [Concomitant]
  3. VERAPAMIL [Concomitant]
  4. ALLOPURINOL [Concomitant]
  5. MOBIC [Concomitant]
  6. DOXAZOSIN MESYLATE [Concomitant]
  7. ARTHRITIS MEDICINE [Concomitant]

REACTIONS (2)
  - COUGH [None]
  - REGURGITATION [None]
